FAERS Safety Report 14465650 (Version 6)
Quarter: 2018Q4

REPORT INFORMATION
  Report Type: Spontaneous
  Country: DE (occurrence: DE)
  Receive Date: 20180131
  Receipt Date: 20181010
  Transmission Date: 20190204
  Serious: Yes (Life-Threatening, Other)
  Sender: FDA-Public Use
  Company Number: DE-TEVA-770571GER

PATIENT
  Age: 63 Year
  Sex: Female

DRUGS (22)
  1. CIRCADIN [Concomitant]
     Active Substance: MELATONIN
     Indication: PRODUCT USED FOR UNKNOWN INDICATION
     Dosage: 2 MILLIGRAM DAILY;
     Route: 048
     Dates: start: 20150612
  2. TAVOR (LORAZEPAM) [Concomitant]
     Active Substance: LORAZEPAM
     Dosage: 1 MILLIGRAM DAILY;
     Route: 048
     Dates: start: 20150616, end: 20150619
  3. MIRTAZAPIN [Suspect]
     Active Substance: MIRTAZAPINE
     Indication: PRODUCT USED FOR UNKNOWN INDICATION
     Dosage: 7.5 MILLIGRAM DAILY;
     Route: 048
     Dates: start: 20130401, end: 20150331
  4. MIRTAZAPIN [Suspect]
     Active Substance: MIRTAZAPINE
     Dosage: 30 MILLIGRAM DAILY;
     Route: 048
     Dates: start: 20150401, end: 20150503
  5. TAVOR (LORAZEPAM) [Concomitant]
     Active Substance: LORAZEPAM
     Dosage: .25 MILLIGRAM DAILY;
     Route: 048
     Dates: start: 20150626
  6. BERLTHYROX [Concomitant]
     Dosage: 50 MICROGRAM DAILY; SINCE YEARS
     Route: 048
  7. TAVOR (FLUCONAZOLE) [Concomitant]
     Active Substance: FLUCONAZOLE
     Dosage: .75 MILLIGRAM DAILY;
     Route: 048
     Dates: start: 20150620, end: 20150624
  8. OLANZAPINE. [Suspect]
     Active Substance: OLANZAPINE
     Dosage: 10 MILLIGRAM DAILY;
     Route: 048
     Dates: start: 20150620, end: 20150621
  9. TAVOR (LORAZEPAM) [Concomitant]
     Active Substance: LORAZEPAM
     Dosage: .75 MILLIGRAM DAILY;
     Route: 048
     Dates: start: 20150620, end: 20150624
  10. PANTOPRAZOL [Concomitant]
     Active Substance: PANTOPRAZOLE SODIUM
     Indication: PRODUCT USED FOR UNKNOWN INDICATION
     Dosage: 40 MILLIGRAM DAILY;
     Route: 048
     Dates: start: 20130101
  11. TAVOR (FLUCONAZOLE) [Concomitant]
     Active Substance: FLUCONAZOLE
     Dosage: 1.5 MILLIGRAM DAILY;
     Route: 048
     Dates: start: 20150528, end: 20150615
  12. TAVOR (LORAZEPAM) [Concomitant]
     Active Substance: LORAZEPAM
     Dosage: 1.5 MILLIGRAM DAILY;
     Route: 048
     Dates: start: 20150528, end: 20150615
  13. ATORVASTATIN [Concomitant]
     Active Substance: ATORVASTATIN
     Dosage: 40 MILLIGRAM DAILY;
     Route: 048
     Dates: start: 20150528
  14. FOLSAEURE [Concomitant]
     Active Substance: FOLIC ACID
     Dosage: 5 MILLIGRAM DAILY;
     Route: 048
     Dates: start: 20150606, end: 20150703
  15. TAVOR (FLUCONAZOLE) [Concomitant]
     Active Substance: FLUCONAZOLE
     Indication: PRODUCT USED FOR UNKNOWN INDICATION
     Dosage: 1 MILLIGRAM DAILY;
     Route: 048
     Dates: start: 20150616, end: 20150619
  16. OLANZAPINE. [Suspect]
     Active Substance: OLANZAPINE
     Indication: PRODUCT USED FOR UNKNOWN INDICATION
     Dosage: 5 MILLIGRAM DAILY;
     Route: 048
     Dates: start: 20150619, end: 20150619
  17. TAVOR (FLUCONAZOLE) [Concomitant]
     Active Substance: FLUCONAZOLE
     Dosage: .25 MILLIGRAM DAILY;
     Route: 048
     Dates: start: 20150626
  18. OLANZAPINE. [Suspect]
     Active Substance: OLANZAPINE
     Dosage: 5 MILLIGRAM DAILY;
     Route: 048
     Dates: start: 20150622
  19. ATORVASTATIN [Concomitant]
     Active Substance: ATORVASTATIN
     Indication: PRODUCT USED FOR UNKNOWN INDICATION
     Dosage: 20 MILLIGRAM DAILY;
     Route: 048
     Dates: start: 20130101, end: 20150527
  20. TAVOR (LORAZEPAM) [Concomitant]
     Active Substance: LORAZEPAM
     Dosage: .5 MILLIGRAM DAILY;
     Route: 048
     Dates: start: 20150625
  21. MIRTAZAPIN [Suspect]
     Active Substance: MIRTAZAPINE
     Dosage: 45 MILLIGRAM DAILY;
     Route: 048
     Dates: start: 20150504
  22. BISOPROLOL [Concomitant]
     Active Substance: BISOPROLOL
     Indication: PRODUCT USED FOR UNKNOWN INDICATION
     Dosage: 2.5 MILLIGRAM DAILY;
     Route: 048
     Dates: start: 20130101

REACTIONS (1)
  - Suicidal ideation [Recovered/Resolved]

NARRATIVE: CASE EVENT DATE: 20150621
